FAERS Safety Report 6542977-4 (Version None)
Quarter: 2010Q1

REPORT INFORMATION
  Report Type: 
  Country: None (occurrence: None)
  Receive Date: 20100120
  Receipt Date: 20100115
  Transmission Date: 20100710
  Serious: Yes (Other)
  Sender: FDA-Public Use
  Company Number: US-ROCHE-677445

PATIENT
  Age: 68 Year
  Sex: Female

DRUGS (7)
  1. NAPROSYN [Suspect]
     Dosage: FREQUENCY: THREE TIMES DAILY OR FOUR TIMES DAILY.
     Route: 048
     Dates: start: 19770101, end: 19850101
  2. LASIX [Concomitant]
  3. LISINOPRIL [Concomitant]
  4. LIBRIUM [Concomitant]
  5. PRAVACHOL [Concomitant]
  6. OXYCODONE [Concomitant]
  7. VITAMIN B-12 [Concomitant]

REACTIONS (6)
  - GASTROINTESTINAL HAEMORRHAGE [None]
  - GENERALISED OEDEMA [None]
  - MUSCLE SPASMS [None]
  - NEUROPATHY PERIPHERAL [None]
  - RENAL DISORDER [None]
  - WEIGHT DECREASED [None]
